FAERS Safety Report 9685842 (Version 2)
Quarter: 2013Q4

REPORT INFORMATION
  Report Type: Report from Study
  Country: TW (occurrence: TW)
  Receive Date: 20131113
  Receipt Date: 20131223
  Transmission Date: 20140711
  Serious: Yes (Other)
  Sender: FDA-Public Use
  Company Number: TW-ABBVIE-13P-153-1166765-00

PATIENT
  Sex: Male
  Weight: 70 kg

DRUGS (5)
  1. HUMIRA [Suspect]
     Indication: PSORIATIC ARTHROPATHY
     Route: 058
     Dates: start: 20100621
  2. HUMIRA [Suspect]
     Route: 058
     Dates: start: 20131013
  3. MTX [Concomitant]
     Indication: PSORIATIC ARTHROPATHY
     Dosage: #3-#6
     Route: 048
     Dates: start: 20050404, end: 20111024
  4. SALAZINE [Concomitant]
     Indication: PSORIATIC ARTHROPATHY
     Dosage: #2-#3
     Route: 048
     Dates: start: 20060518
  5. ARHEUMA [Concomitant]
     Indication: PSORIATIC ARTHROPATHY
     Dosage: #1
     Route: 048
     Dates: start: 20120213

REACTIONS (1)
  - Hepatic neoplasm [Unknown]
